FAERS Safety Report 5385199-5 (Version None)
Quarter: 2007Q3

REPORT INFORMATION
  Report Type: 
  Country: None (occurrence: None)
  Receive Date: 20070706
  Receipt Date: 20070706
  Transmission Date: 20080115
  Serious: Yes (Hospitalization)
  Sender: FDA-Public Use
  Company Number: None

PATIENT
  Age: 91 Year
  Sex: Male
  Weight: 63.5036 kg

DRUGS (1)
  1. TRANSDERM SCOP [Suspect]
     Indication: DIZZINESS
     Dosage: PATCH FIRST USE TRANSDERMAL
     Route: 062
     Dates: start: 20070629, end: 20070701

REACTIONS (4)
  - DISORIENTATION [None]
  - DREAMY STATE [None]
  - DYSARTHRIA [None]
  - HALLUCINATION [None]
